FAERS Safety Report 20629331 (Version 5)
Quarter: 2024Q1

REPORT INFORMATION
  Report Type: Spontaneous
  Country: US (occurrence: US)
  Receive Date: 20220323
  Receipt Date: 20240301
  Transmission Date: 20240410
  Serious: Yes (Other)
  Sender: FDA-Public Use
  Company Number: US-PFIZER INC-202200342924

PATIENT
  Sex: Female
  Weight: 54.43 kg

DRUGS (2)
  1. PREMARIN [Suspect]
     Active Substance: ESTROGENS, CONJUGATED
     Indication: Contraception
     Dosage: UNK
  2. PREMARIN [Suspect]
     Active Substance: ESTROGENS, CONJUGATED
     Dosage: GREEN TABLETS

REACTIONS (7)
  - Vascular operation [Unknown]
  - Drug dependence [Not Recovered/Not Resolved]
  - Off label use [Unknown]
  - Malaise [Unknown]
  - Movement disorder [Unknown]
  - Feeling abnormal [Unknown]
  - Body height decreased [Unknown]
